FAERS Safety Report 5145252-8 (Version None)
Quarter: 2006Q4

REPORT INFORMATION
  Report Type: 
  Country: None (occurrence: None)
  Receive Date: 20061107
  Receipt Date: 19980917
  Transmission Date: 20070319
  Serious: Yes (Hospitalization, Other)
  Sender: FDA-Public Use
  Company Number: US-ELI_LILLY_AND_COMPANY-US_980910411

PATIENT
  Age: 75 Year
  Sex: Female
  Weight: 40.909 kg

DRUGS (9)
  1. LIPITOR [Concomitant]
  2. EVISTA [Suspect]
     Indication: OSTEOPOROSIS
     Dosage: 60 MG, DAILY (1/D)
     Route: 048
     Dates: start: 19980305
  3. FORTEO [Suspect]
     Indication: OSTEOPOROSIS
     Dosage: UNK, EACH EVENING
     Dates: start: 20051005
  4. COZAAR [Concomitant]
     Indication: HYPERTENSION
     Dosage: 25 MG, 2/D
     Route: 048
     Dates: start: 19950601
  5. VITAMIN E [Concomitant]
     Dosage: UNK, UNKNOWN
     Route: 048
  6. AEROBID [Concomitant]
     Indication: CHRONIC OBSTRUCTIVE PULMONARY DISEASE
     Dosage: UNK, UNKNOWN
     Route: 055
  7. PROVENTIL [Concomitant]
     Dosage: UNK, UNKNOWN
     Route: 065
  8. NASACORT [Concomitant]
     Dosage: UNK, UNKNOWN
     Route: 065
  9. ASPIRIN [Concomitant]
     Dosage: UNK, UNKNOWN
     Route: 048
     Dates: start: 19980801

REACTIONS (28)
  - ARTHRALGIA [None]
  - ASTHENIA [None]
  - BACK PAIN [None]
  - BASEDOW'S DISEASE [None]
  - BLINDNESS [None]
  - BLOOD PRESSURE DECREASED [None]
  - BLOOD PRESSURE INCREASED [None]
  - BONE DENSITY DECREASED [None]
  - BONE PAIN [None]
  - DISCOMFORT [None]
  - DIZZINESS [None]
  - EYE PAIN [None]
  - HEADACHE [None]
  - HEART RATE INCREASED [None]
  - INSOMNIA [None]
  - LUNG DISORDER [None]
  - LUNG NEOPLASM [None]
  - LUNG NEOPLASM MALIGNANT [None]
  - MALAISE [None]
  - MYALGIA [None]
  - NAUSEA [None]
  - NEPHROLITHIASIS [None]
  - PAIN IN EXTREMITY [None]
  - PALPITATIONS [None]
  - RENAL DISORDER [None]
  - RETINAL VEIN OCCLUSION [None]
  - VISION BLURRED [None]
  - VISUAL ACUITY REDUCED [None]
